FAERS Safety Report 8918783 (Version 1)
Quarter: 2012Q4

REPORT INFORMATION
  Report Type: 
  Country: US (occurrence: US)
  Receive Date: 20121120
  Receipt Date: 20121120
  Transmission Date: 20130627
  Serious: No
  Sender: FDA-Public Use
  Company Number: US-ASTRAZENECA-2012SE21031

PATIENT
  Age: 80 Year
  Sex: Male
  Weight: 67.1 kg

DRUGS (2)
  1. NEXIUM [Suspect]
     Indication: GASTRIC DISORDER
     Route: 048
  2. GABAPENTIN [Concomitant]

REACTIONS (6)
  - Pain [Unknown]
  - Abdominal distension [Unknown]
  - Oesophageal disorder [Unknown]
  - Gastric disorder [Unknown]
  - Off label use [Unknown]
  - Intentional drug misuse [Unknown]
